FAERS Safety Report 20757983 (Version 1)
Quarter: 2022Q2

REPORT INFORMATION
  Report Type: Spontaneous
  Country: US (occurrence: US)
  Receive Date: 20220427
  Receipt Date: 20220427
  Transmission Date: 20220720
  Serious: No
  Sender: FDA-Public Use
  Company Number: US-PFIZER INC-202200300536

PATIENT
  Age: 72 Year
  Sex: Female

DRUGS (1)
  1. LIOTHYRONINE SODIUM [Suspect]
     Active Substance: LIOTHYRONINE SODIUM
     Indication: Hypothyroidism
     Dosage: 75 MG (75MCG OR MG, NOT SURE OF DOSAGE, BY MOUTH)
     Route: 048

REACTIONS (1)
  - Drug ineffective [Unknown]
